FAERS Safety Report 16880753 (Version 5)
Quarter: 2020Q3

REPORT INFORMATION
  Report Type: Spontaneous
  Country: AT (occurrence: AT)
  Receive Date: 20191003
  Receipt Date: 20200707
  Transmission Date: 20201102
  Serious: Yes (Life-Threatening, Hospitalization, Disabling, Other)
  Sender: FDA-Public Use
  Company Number: AT-PFIZER INC-2019414837

PATIENT
  Age: 3 Year
  Sex: Male

DRUGS (11)
  1. HEPARIN [Concomitant]
     Active Substance: HEPARIN SODIUM
     Indication: THROMBOSIS
     Dosage: UNK
  2. EPINEPHRINE. [Suspect]
     Active Substance: EPINEPHRINE
     Indication: TOXIC SHOCK SYNDROME STREPTOCOCCAL
  3. HYDROCORTISONE. [Suspect]
     Active Substance: HYDROCORTISONE
     Indication: HYPOTENSION
     Dosage: UNK
     Route: 040
  4. VASOPRESSIN. [Suspect]
     Active Substance: VASOPRESSIN
     Indication: HYPOTENSION
     Dosage: UNK
     Route: 065
  5. NOREPINEPHRINE BITARTRATE. [Suspect]
     Active Substance: NOREPINEPHRINE BITARTRATE
     Indication: TOXIC SHOCK SYNDROME STREPTOCOCCAL
  6. EPINEPHRINE. [Suspect]
     Active Substance: EPINEPHRINE
     Indication: HYPOTENSION
     Dosage: UNK (ADMINISTERED BY CONTINUOUS INFUSION VIA A PERIPHERAL LINE ON THE DORSUM OF THE LEFT FOOT)
  7. PHENYLEPHRINE [Suspect]
     Active Substance: PHENYLEPHRINE HYDROCHLORIDE
     Indication: TOXIC SHOCK SYNDROME STREPTOCOCCAL
  8. NOREPINEPHRINE BITARTRATE. [Suspect]
     Active Substance: NOREPINEPHRINE BITARTRATE
     Indication: HYPOTENSION
     Dosage: UNK
  9. HYDROCORTISONE. [Suspect]
     Active Substance: HYDROCORTISONE
     Indication: TOXIC SHOCK SYNDROME STREPTOCOCCAL
  10. VASOPRESSIN. [Suspect]
     Active Substance: VASOPRESSIN
     Indication: TOXIC SHOCK SYNDROME STREPTOCOCCAL
  11. PHENYLEPHRINE [Suspect]
     Active Substance: PHENYLEPHRINE HYDROCHLORIDE
     Indication: HYPOTENSION
     Dosage: UNK (FRACTIONATED ADMINISTRATION/VIA INTRAOSSEOUS LINE)

REACTIONS (3)
  - Muscle necrosis [Recovered/Resolved]
  - Drug ineffective [Unknown]
  - Peripheral ischaemia [Recovered/Resolved]
